FAERS Safety Report 8214576-X (Version None)
Quarter: 2012Q1

REPORT INFORMATION
  Report Type: 
  Country: None (occurrence: None)
  Receive Date: 20120316
  Receipt Date: 20120305
  Transmission Date: 20120608
  Serious: Yes (Hospitalization, Other)
  Sender: FDA-Public Use
  Company Number: US-ELI_LILLY_AND_COMPANY-US201106004345

PATIENT
  Sex: Female

DRUGS (12)
  1. SYNTHROID [Concomitant]
  2. METOPROLOL SUCCINATE [Concomitant]
  3. NEXIUM [Concomitant]
  4. FORTEO [Suspect]
     Dosage: 20 UG, QD
     Dates: end: 20120102
  5. LASIX [Concomitant]
  6. FORTEO [Suspect]
     Dosage: 20 UG, QD
     Route: 065
  7. PREDNISONE TAB [Concomitant]
     Indication: POLYMYOSITIS
     Route: 065
  8. NITROFURANTOIN [Concomitant]
  9. COUMADIN [Concomitant]
  10. VITAMIN TAB [Concomitant]
  11. FORTEO [Suspect]
     Indication: OSTEOPOROSIS
     Dosage: 20 UG, QD
     Route: 065
     Dates: start: 20110602
  12. FORTEO [Suspect]
     Dosage: 20 UG, QD
     Route: 065

REACTIONS (15)
  - HOSPITALISATION [None]
  - URINARY TRACT INFECTION [None]
  - OCULAR HYPERAEMIA [None]
  - PALPITATIONS [None]
  - NAUSEA [None]
  - BONE PAIN [None]
  - HAEMORRHAGE [None]
  - ABDOMINAL PAIN UPPER [None]
  - PAIN [None]
  - PAIN IN EXTREMITY [None]
  - ARTHRALGIA [None]
  - HAEMATOMA [None]
  - PNEUMONIA [None]
  - EYE HAEMORRHAGE [None]
  - MUSCULOSKELETAL PAIN [None]
